FAERS Safety Report 9843325 (Version 1)
Quarter: 2013Q4

REPORT INFORMATION
  Report Type: Spontaneous
  Country: US (occurrence: None)
  Receive Date: 20131223
  Receipt Date: 20131223
  Transmission Date: 20140711
  Serious: No
  Sender: FDA-Public Use
  Company Number: 218833LEO

PATIENT
  Age: 60 Year
  Sex: Male

DRUGS (4)
  1. PICATO [Suspect]
     Indication: ACTINIC KERATOSIS
     Route: 061
     Dates: start: 20120904
  2. LIPITOR (ATORVASTATIN CALCIUM) [Concomitant]
  3. FLOMAX (MORNIFLUMATE) [Concomitant]
  4. AVODART (DUTASTERIDE) [Concomitant]

REACTIONS (3)
  - Dysgeusia [None]
  - Drug administration error [None]
  - Drug administered at inappropriate site [None]
